FAERS Safety Report 7677570-3 (Version None)
Quarter: 2011Q3

REPORT INFORMATION
  Report Type: 
  Country: None (occurrence: None)
  Receive Date: 20110811
  Receipt Date: 20110811
  Transmission Date: 20111222
  Serious: Yes (Other)
  Sender: FDA-Public Use
  Company Number: None

PATIENT
  Sex: Female
  Weight: 75 kg

DRUGS (2)
  1. GAMUNEX [Suspect]
     Indication: CHRONIC INFLAMMATORY DEMYELINATING POLYRADICULONEUROPATHY
     Dosage: 10 GM
     Route: 041
     Dates: start: 20110419, end: 20110517
  2. GAMMUNEX-C [Concomitant]
     Indication: SJOGREN'S SYNDROME
     Dosage: 20GM
     Route: 041

REACTIONS (1)
  - DIARRHOEA [None]
